FAERS Safety Report 17523116 (Version 1)
Quarter: 2020Q1

REPORT INFORMATION
  Report Type: Report from Study
  Country: None (occurrence: DE)
  Receive Date: 20200311
  Receipt Date: 20200311
  Transmission Date: 20200409
  Serious: Yes (Hospitalization)
  Sender: FDA-Public Use
  Company Number: DE-ABBVIE-20K-062-3251620-00

PATIENT
  Age: 61 Year
  Sex: Female

DRUGS (2)
  1. MTX [Concomitant]
     Active Substance: METHOTREXATE SODIUM
     Indication: PRODUCT USED FOR UNKNOWN INDICATION
  2. HUMIRA [Suspect]
     Active Substance: ADALIMUMAB
     Indication: RHEUMATOID ARTHRITIS
     Route: 058

REACTIONS (5)
  - Urosepsis [Recovered/Resolved]
  - Nephrolithiasis [Recovered/Resolved]
  - Klebsiella infection [Recovered/Resolved]
  - Renal colic [Recovered/Resolved]
  - Calculus urethral [Recovered/Resolved]

NARRATIVE: CASE EVENT DATE: 20191211
